FAERS Safety Report 19090317 (Version 2)
Quarter: 2021Q2

REPORT INFORMATION
  Report Type: Report from Study
  Country: None (occurrence: GB)
  Receive Date: 20210405
  Receipt Date: 20210415
  Transmission Date: 20210717
  Serious: Yes (Other)
  Sender: FDA-Public Use
  Company Number: GB-ABBVIE-21K-167-3768707-00

PATIENT
  Age: 71 Year
  Sex: Female

DRUGS (2)
  1. DUODOPA [Suspect]
     Active Substance: CARBIDOPA\LEVODOPA
     Indication: PARKINSON^S DISEASE
     Dosage: MORNING DOSE 9.5 MLS, CD 3.8MLS/HR, EXTRA DOSE 2.0 MLS?07:30 TO 08:30 TILL 22:00 TO 22:30
     Route: 050
     Dates: start: 20200807, end: 2021
  2. DUODOPA [Suspect]
     Active Substance: CARBIDOPA\LEVODOPA
     Dosage: MORNING DOSE 9.5MLS, CONTINUOUS DOSE 3.7MLS/HR, EXTRA DOSE?2.2MLS
     Route: 050
     Dates: start: 20210320

REACTIONS (11)
  - Depressed mood [Not Recovered/Not Resolved]
  - Dystonia [Recovering/Resolving]
  - Nocturia [Recovering/Resolving]
  - Urinary tract infection [Recovering/Resolving]
  - Memory impairment [Not Recovered/Not Resolved]
  - Dyskinesia [Recovering/Resolving]
  - Constipation [Not Recovered/Not Resolved]
  - Muscle rigidity [Recovering/Resolving]
  - Anxiety [Recovering/Resolving]
  - Knee arthroplasty [Not Recovered/Not Resolved]
  - Osteoporosis [Not Recovered/Not Resolved]

NARRATIVE: CASE EVENT DATE: 2021
